FAERS Safety Report 6279809-8 (Version None)
Quarter: 2009Q3

REPORT INFORMATION
  Report Type: 
  Country: None (occurrence: None)
  Receive Date: 20090723
  Receipt Date: 20090715
  Transmission Date: 20100115
  Serious: Yes (Hospitalization)
  Sender: FDA-Public Use
  Company Number: JP-BRISTOL-MYERS SQUIBB COMPANY-14505556

PATIENT
  Age: 41 Year
  Sex: Female
  Weight: 46 kg

DRUGS (13)
  1. ABILIFY [Suspect]
     Indication: SCHIZOPHRENIA
     Dosage: 12MG,QD,26NOV-26NOV(1D);24MG,27NOV-03DEC(7D);30MG,04DEC08-22MAY09(170D);23MAY09-ONG
     Route: 048
     Dates: start: 20081126
  2. PYRIDOXAL PHOSPHATE [Concomitant]
     Dosage: TAKEN ON 11DEC2008 TABS FORM
     Dates: start: 20081208
  3. MUCOSTA [Concomitant]
     Dosage: TAKEN ON 16APR2009
     Dates: start: 20081215, end: 20090522
  4. HIBON [Concomitant]
     Dates: start: 20090108, end: 20090522
  5. ROHIPNOL [Concomitant]
     Dosage: TABS
     Dates: start: 20090107
  6. BIOFERMIN [Concomitant]
     Dosage: TABS
     Dates: start: 20090205, end: 20090522
  7. PENTASA [Concomitant]
     Dosage: FORMULATION TABLETS
     Dates: start: 20080201, end: 20090522
  8. LORAZEPAM [Concomitant]
     Dosage: FORMULATION TABLETS
     Dates: start: 20081118, end: 20090522
  9. BROTIZOLAM [Concomitant]
     Dosage: TABS
     Dates: start: 20080804, end: 20090522
  10. DEPAKENE [Concomitant]
  11. CALCIUM PANTOTHENATE [Concomitant]
     Dates: start: 20090108, end: 20090522
  12. ASCORBIC ACID [Concomitant]
     Dates: start: 20090108, end: 20090522
  13. DEPAKENE [Concomitant]

REACTIONS (1)
  - PSYCHIATRIC SYMPTOM [None]
